FAERS Safety Report 6938013-8 (Version None)
Quarter: 2010Q3

REPORT INFORMATION
  Report Type: 
  Country: None (occurrence: None)
  Receive Date: 20100824
  Receipt Date: 20100527
  Transmission Date: 20110219
  Serious: Yes (Hospitalization)
  Sender: FDA-Public Use
  Company Number: US-ASTRAZENECA-2010SE38472

PATIENT
  Age: 614 Month
  Sex: Female

DRUGS (6)
  1. SEROQUEL [Suspect]
     Dosage: 100 MG TO 1100 MG
     Route: 048
     Dates: start: 20060308
  2. PRINIVIL [Concomitant]
     Route: 048
     Dates: start: 20080118
  3. LEXAPRO [Concomitant]
     Route: 048
     Dates: start: 20080118
  4. LIPITOR [Concomitant]
     Route: 048
     Dates: start: 20080118
  5. LITHIUM CARBONATE [Concomitant]
     Dates: end: 20080118
  6. HYDROCHLOROTHIAZIDE [Concomitant]
     Dates: end: 20080118

REACTIONS (7)
  - CHEST PAIN [None]
  - DEPRESSION [None]
  - DIABETES MELLITUS [None]
  - HYPERTENSION [None]
  - HYPOKALAEMIA [None]
  - SCHIZOPHRENIA [None]
  - THERAPEUTIC AGENT TOXICITY [None]
